FAERS Safety Report 5568585-X (Version None)
Quarter: 2007Q4

REPORT INFORMATION
  Report Type: 
  Country: None (occurrence: None)
  Receive Date: 20071220
  Receipt Date: 20071213
  Transmission Date: 20080405
  Serious: Yes (Death, Hospitalization)
  Sender: FDA-Public Use
  Company Number: US-MERCK-0712USA04814

PATIENT
  Age: 74 Year
  Sex: Female

DRUGS (9)
  1. ZETIA [Suspect]
     Indication: BLOOD CHOLESTEROL
     Route: 048
     Dates: start: 20050101, end: 20051201
  2. PRILOSEC [Concomitant]
     Route: 065
  3. LACTULOSE [Concomitant]
     Route: 065
  4. NEOMYCIN [Concomitant]
     Route: 065
  5. SYNTHROID [Concomitant]
     Route: 065
  6. OS-CAL [Concomitant]
     Route: 065
  7. FUROSEMIDE [Concomitant]
     Route: 065
  8. WELCHOL [Concomitant]
     Route: 065
  9. EFFEXOR [Concomitant]
     Route: 065

REACTIONS (7)
  - ABDOMINAL PAIN UPPER [None]
  - CHRONIC INFLAMMATORY DEMYELINATING POLYRADICULONEUROPATHY [None]
  - COLITIS [None]
  - DIABETIC NEUROPATHY [None]
  - GALLBLADDER DISORDER [None]
  - RENAL FAILURE [None]
  - RHABDOMYOLYSIS [None]
